FAERS Safety Report 21735587 (Version 3)
Quarter: 2023Q4

REPORT INFORMATION
  Report Type: Report from Study
  Country: CA (occurrence: CA)
  Receive Date: 20221215
  Receipt Date: 20231106
  Transmission Date: 20240110
  Serious: Yes (Other)
  Sender: FDA-Public Use
  Company Number: CA-MYLANLABS-2022M1138514

PATIENT
  Age: 61 Year
  Sex: Female

DRUGS (1)
  1. HULIO [Suspect]
     Active Substance: ADALIMUMAB-FKJP
     Indication: Psoriatic arthropathy
     Dosage: 40 MILLIGRAM, BIWEEKLY
     Route: 058
     Dates: start: 20220430

REACTIONS (7)
  - Intervertebral disc protrusion [Unknown]
  - Spinal compression fracture [Unknown]
  - Behcet^s syndrome [Unknown]
  - Fall [Unknown]
  - Urinary tract infection [Unknown]
  - Tremor [Unknown]
  - Skin discolouration [Unknown]

NARRATIVE: CASE EVENT DATE: 20220826
